FAERS Safety Report 9261332 (Version 5)
Quarter: 2014Q1

REPORT INFORMATION
  Report Type: Spontaneous
  Country: US (occurrence: US)
  Receive Date: 20130429
  Receipt Date: 20140307
  Transmission Date: 20141002
  Serious: Yes (Hospitalization, Other)
  Sender: FDA-Public Use
  Company Number: US-009507513-1304USA013884

PATIENT
  Sex: Female
  Weight: 86.17 kg

DRUGS (11)
  1. FOSAMAX [Suspect]
     Indication: OSTEOPOROSIS
     Dosage: 10 MG, UNK
     Route: 048
     Dates: start: 20011120, end: 20080220
  2. FOSAMAX [Suspect]
     Dosage: 70 MG, UNK
     Route: 048
     Dates: start: 20011120, end: 20080220
  3. ALENDRONATE SODIUM [Suspect]
     Indication: OSTEOPOROSIS
     Dosage: 70 MG, UNK
     Dates: start: 20080221, end: 20110329
  4. ASPIRIN [Concomitant]
     Dosage: 81 MG, QD
     Dates: start: 2003
  5. CALCIUM (UNSPECIFIED) [Concomitant]
     Dosage: 500 MG, QD
     Dates: start: 2003
  6. DIAZIDE (HYDROCHLOROTHIAZIDE (+) TRIAMTERENE) [Concomitant]
     Indication: OSTEOPOROSIS
     Dosage: UNK
     Dates: start: 1980
  7. ZOCOR [Concomitant]
     Indication: BLOOD CHOLESTEROL INCREASED
     Dosage: UNK
     Dates: start: 20050427
  8. NIASPAN [Concomitant]
     Indication: BLOOD CHOLESTEROL INCREASED
     Dosage: UNK
     Dates: start: 2007
  9. LISINOPRIL [Concomitant]
     Indication: HYPERTENSION
     Dosage: UNK
     Dates: start: 20101023
  10. HYDROCHLOROTHIAZIDE (+) TRIAMTERENE [Concomitant]
     Indication: HYPERTENSION
     Dosage: UNK
     Dates: start: 20011101
  11. SIMVASTATIN [Concomitant]
     Indication: BLOOD CHOLESTEROL INCREASED
     Dosage: UNK
     Dates: start: 20061004

REACTIONS (11)
  - Femur fracture [Recovered/Resolved]
  - Intramedullary rod insertion [Unknown]
  - Shoulder arthroplasty [Unknown]
  - Low turnover osteopathy [Unknown]
  - Bacterial infection [Unknown]
  - Fungal skin infection [Unknown]
  - Nephrolithiasis [Unknown]
  - Cataract [Unknown]
  - Uterine dilation and curettage [Unknown]
  - Tonsillectomy [Unknown]
  - Arthritis [Unknown]
